FAERS Safety Report 8820869 (Version 3)
Quarter: 2012Q4

REPORT INFORMATION
  Report Type: Report from Study
  Country: US (occurrence: US)
  Receive Date: 20121002
  Receipt Date: 20121217
  Transmission Date: 20130627
  Serious: Yes (Death, Hospitalization)
  Sender: FDA-Public Use
  Company Number: US-CELGENEUS-163-C5013-12093146

PATIENT
  Age: 83 Year
  Sex: Female
  Weight: 70 kg

DRUGS (27)
  1. CC-5013 [Suspect]
     Indication: CLL
     Dosage: 2.5 Milligram
     Route: 048
     Dates: start: 20110425
  2. CC-5013 [Suspect]
     Dosage: 2.5 Milligram
     Route: 048
     Dates: start: 20120808, end: 20120902
  3. CALCIUM CITRATE [Concomitant]
     Indication: DRUG USE FOR UNKNOWN INDICATION
     Route: 048
  4. DULCOLAX [Concomitant]
     Indication: DRUG USE FOR UNKNOWN INDICATION
     Route: 048
  5. DYAZIDE [Concomitant]
     Indication: DRUG USE FOR UNKNOWN INDICATION
     Route: 065
  6. ELAVIL [Concomitant]
     Indication: DRUG USE FOR UNKNOWN INDICATION
     Dosage: 10 Milligram
     Route: 065
  7. MEGACE [Concomitant]
     Indication: DRUG USE FOR UNKNOWN INDICATION
     Dosage: 800 Milligram
     Route: 065
  8. NORCO [Concomitant]
     Indication: DRUG USE FOR UNKNOWN INDICATION
     Dosage: 7.5/325
     Route: 065
  9. OXYBUTYNIN [Concomitant]
     Indication: DRUG USE FOR UNKNOWN INDICATION
     Dosage: 10 Milligram
     Route: 048
  10. PREDNISONE [Concomitant]
     Indication: DRUG USE FOR UNKNOWN INDICATION
     Dosage: 5 Milligram
     Route: 048
  11. VITAMIN D [Concomitant]
     Indication: DRUG USE FOR UNKNOWN INDICATION
     Route: 048
  12. FOLATE [Concomitant]
     Indication: DRUG USE FOR UNKNOWN INDICATION
     Dosage: 1 Milligram
     Route: 048
  13. FOSAMAX [Concomitant]
     Indication: DRUG USE FOR UNKNOWN INDICATION
     Dosage: 70 Milligram
     Route: 048
  14. HYDROCODONE [Concomitant]
     Indication: DRUG USE FOR UNKNOWN INDICATION
     Dosage: 7.5/500
     Route: 048
  15. VITAMIN B12 [Concomitant]
     Indication: DRUG USE FOR UNKNOWN INDICATION
     Route: 048
  16. MULTIVITAMINS [Concomitant]
     Indication: DRUG USE FOR UNKNOWN INDICATION
     Route: 048
  17. COLON HEALTH [Concomitant]
     Indication: DRUG USE FOR UNKNOWN INDICATION
     Route: 048
  18. TYLENOL [Concomitant]
     Indication: DRUG USE FOR UNKNOWN INDICATION
     Dosage: 650 Milligram
     Route: 065
  19. PHENERGAN [Concomitant]
     Indication: DRUG USE FOR UNKNOWN INDICATION
     Dosage: 12.5
     Route: 065
  20. MAALOX [Concomitant]
     Indication: DRUG USE FOR UNKNOWN INDICATION
     Dosage: 30 milliliter
     Route: 065
  21. SENOKOT [Concomitant]
     Indication: DRUG USE FOR UNKNOWN INDICATION
     Route: 065
  22. BACTRIM DS [Concomitant]
     Indication: DRUG USE FOR UNKNOWN INDICATION
     Route: 065
     Dates: end: 20120927
  23. IRON SULFATE [Concomitant]
     Indication: DRUG USE FOR UNKNOWN INDICATION
     Dosage: 975 Milligram
     Route: 048
  24. EPOGEN [Concomitant]
     Indication: DRUG USE FOR UNKNOWN INDICATION
     Dosage: 10,000 u
     Route: 048
  25. BILATERAL TED HOSES [Concomitant]
     Indication: DRUG USE FOR UNKNOWN INDICATION
     Route: 065
  26. CALCIUM W/ VITAMIN D [Concomitant]
     Indication: DRUG USE FOR UNKNOWN INDICATION
     Route: 065
  27. OXYGEN [Concomitant]
     Indication: DRUG USE FOR UNKNOWN INDICATION
     Dosage: 4 Liters
     Route: 055

REACTIONS (5)
  - Atrial fibrillation [Fatal]
  - Deep vein thrombosis [Unknown]
  - Anaemia haemolytic autoimmune [Recovered/Resolved]
  - Anaemia haemolytic autoimmune [Not Recovered/Not Resolved]
  - Hip fracture [Not Recovered/Not Resolved]
